FAERS Safety Report 12722768 (Version 1)
Quarter: 2016Q3

REPORT INFORMATION
  Report Type: Report from Study
  Country: US (occurrence: US)
  Receive Date: 20160907
  Receipt Date: 20160907
  Transmission Date: 20161109
  Serious: Yes (Other)
  Sender: FDA-Public Use
  Company Number: US-ABBVIE-16K-163-1715809-00

PATIENT
  Sex: Female

DRUGS (2)
  1. HUMIRA [Suspect]
     Active Substance: ADALIMUMAB
     Indication: CROHN^S DISEASE
     Route: 058
     Dates: start: 201602
  2. HUMIRA [Suspect]
     Active Substance: ADALIMUMAB
     Route: 058
     Dates: start: 201606

REACTIONS (6)
  - Cataract [Recovered/Resolved]
  - Intervertebral disc protrusion [Recovering/Resolving]
  - Procedural pain [Recovering/Resolving]
  - Back pain [Recovering/Resolving]
  - Neuralgia [Recovered/Resolved]
  - Drug ineffective [Recovering/Resolving]

NARRATIVE: CASE EVENT DATE: 2016
